FAERS Safety Report 15812935 (Version 1)
Quarter: 2019Q1

REPORT INFORMATION
  Report Type: Spontaneous
  Country: US (occurrence: US)
  Receive Date: 20190110
  Receipt Date: 20190110
  Transmission Date: 20190417
  Serious: Yes (Other)
  Sender: FDA-Public Use
  Company Number: None

PATIENT
  Age: 31 Year
  Sex: Male

DRUGS (1)
  1. BUPRENORPHINE - NALOXONE, 8 MG [Suspect]
     Active Substance: BUPRENORPHINE\NALOXONE
     Indication: DRUG DEPENDENCE
     Route: 048

REACTIONS (5)
  - Product taste abnormal [None]
  - Dry mouth [None]
  - Product solubility abnormal [None]
  - Drug withdrawal syndrome [None]
  - Drug level decreased [None]

NARRATIVE: CASE EVENT DATE: 20190110
